FAERS Safety Report 5030711-9 (Version None)
Quarter: 2006Q2

REPORT INFORMATION
  Report Type: 
  Country: None (occurrence: None)
  Receive Date: 20060615
  Receipt Date: 20060614
  Transmission Date: 20061013
  Serious: Yes (Hospitalization)
  Sender: FDA-Public Use
  Company Number: 222355

PATIENT
  Age: 73 Year
  Sex: Female
  Weight: 63 kg

DRUGS (5)
  1. HERCEPTIN [Suspect]
     Dosage: 500 MG, QD, INTRAVENOUS
     Route: 042
     Dates: start: 20050728, end: 20050728
  2. TAXOTERE [Suspect]
     Dosage: 165 MG, QD, INTRAVENOUS
     Route: 042
     Dates: start: 20050729, end: 20050729
  3. LEVOTHYROXINE SODIUM [Concomitant]
  4. TIRATRICOL (TIRATRICOL) [Concomitant]
  5. LODOZ (BISOPOLOL FUMARATE, HYDROCHLOROTHIAZIDE) [Concomitant]

REACTIONS (2)
  - BONE MARROW FAILURE [None]
  - FEBRILE NEUTROPENIA [None]
